FAERS Safety Report 9613629 (Version 1)
Quarter: 2013Q4

REPORT INFORMATION
  Report Type: Spontaneous
  Country: US (occurrence: US)
  Receive Date: 20131010
  Receipt Date: 20131010
  Transmission Date: 20140711
  Serious: No
  Sender: FDA-Public Use
  Company Number: US-TEVA-426828USA

PATIENT
  Age: 30 Year
  Sex: Female

DRUGS (1)
  1. JOLESSA TABLET 0.15/0.03MG [Suspect]
     Dosage: 0.15MG/0.3MG
     Route: 048
     Dates: start: 20130801

REACTIONS (2)
  - Nausea [Not Recovered/Not Resolved]
  - Loss of libido [Not Recovered/Not Resolved]
